FAERS Safety Report 4990426-X (Version None)
Quarter: 2006Q2

REPORT INFORMATION
  Report Type: 
  Country: None (occurrence: None)
  Receive Date: 20060501
  Receipt Date: 20060501
  Transmission Date: 20061013
  Serious: No
  Sender: FDA-Public Use
  Company Number: None

PATIENT
  Age: 21 Year
  Sex: Male
  Weight: 90 kg

DRUGS (1)
  1. CIPROFLOXACIN [Suspect]
     Indication: PROSTATIC DISORDER
     Dosage: 750 MG    2 PER DAY   PO
     Route: 048
     Dates: start: 19980301, end: 19980314

REACTIONS (13)
  - ARTHRALGIA [None]
  - ARTHROPATHY [None]
  - BALANCE DISORDER [None]
  - BURNING SENSATION [None]
  - DEAFNESS [None]
  - DISTURBANCE IN ATTENTION [None]
  - DIZZINESS [None]
  - EAR DISCOMFORT [None]
  - FEELING HOT [None]
  - HYPOAESTHESIA [None]
  - MUSCULOSKELETAL STIFFNESS [None]
  - SOMNOLENCE [None]
  - TINNITUS [None]
